FAERS Safety Report 14441504 (Version 1)
Quarter: 2018Q1

REPORT INFORMATION
  Report Type: Spontaneous
  Country: US (occurrence: US)
  Receive Date: 20180125
  Receipt Date: 20180125
  Transmission Date: 20180509
  Serious: Yes (Death)
  Sender: FDA-Public Use
  Company Number: US-TEVA-2018-US-850234

PATIENT
  Age: 33 Year
  Sex: Female

DRUGS (3)
  1. MORPHINE [Suspect]
     Active Substance: MORPHINE
     Route: 065
  2. CODEINE [Suspect]
     Active Substance: CODEINE
     Route: 065
  3. DELTA-9-TETRAHYDROCANNABINOL [Concomitant]
     Active Substance: DRONABINOL
     Route: 065

REACTIONS (1)
  - Toxicity to various agents [Fatal]
